FAERS Safety Report 8724698 (Version 2)
Quarter: 2012Q4

REPORT INFORMATION
  Report Type: 
  Country: PT (occurrence: PT)
  Receive Date: 20120815
  Receipt Date: 20120904
  Transmission Date: 20130627
  Serious: Yes (Hospitalization, Other)
  Sender: FDA-Public Use
  Company Number: PT-PFIZER INC-2012198128

PATIENT
  Age: 62 Year
  Sex: Male
  Weight: 70 kg

DRUGS (15)
  1. CARVEDILOL [Suspect]
     Indication: HYPERTENSION
     Dosage: 25 mg/day
     Route: 048
  2. AMLODIPINE [Interacting]
     Indication: PRODUCT USED FOR UNKNOWN INDICATION
     Dosage: UNK
     Route: 065
  3. SIMVASTATIN [Interacting]
     Indication: PRODUCT USED FOR UNKNOWN INDICATION
     Dosage: UNK
     Route: 065
  4. ENOXAPARIN [Interacting]
     Indication: PRODUCT USED FOR UNKNOWN INDICATION
     Dosage: UNK
     Route: 065
  5. ENALAPRIL [Interacting]
     Indication: PRODUCT USED FOR UNKNOWN INDICATION
     Dosage: UNK
     Route: 065
  6. DIAZEPAM [Interacting]
     Indication: PRODUCT USED FOR UNKNOWN INDICATION
     Dosage: UNK
     Route: 065
  7. POTASSIUM CHLORIDE [Interacting]
     Indication: PRODUCT USED FOR UNKNOWN INDICATION
     Dosage: UNK
     Route: 065
  8. WARFARIN [Interacting]
     Indication: PRODUCT USED FOR UNKNOWN INDICATION
     Dosage: UNK
     Route: 065
  9. ESPIRONOLACTONA [Interacting]
     Indication: PRODUCT USED FOR UNKNOWN INDICATION
     Dosage: UNK
     Route: 065
  10. CAPTOPRIL [Interacting]
     Indication: PRODUCT USED FOR UNKNOWN INDICATION
     Dosage: UNK
     Route: 065
  11. ASPIRIN [Interacting]
     Indication: TRANSIENT ISCHAEMIC ATTACK
     Dosage: 300 mg, UNK
     Route: 048
  12. NIFEDIPINE [Interacting]
     Indication: PRODUCT USED FOR UNKNOWN INDICATION
     Dosage: 30 mg, 2x/day
     Route: 048
  13. LISINOPRIL DIHYDRATE [Concomitant]
     Indication: PRODUCT USED FOR UNKNOWN INDICATION
     Dosage: UNK
     Route: 048
  14. KARVEA HCT [Concomitant]
     Indication: PRODUCT USED FOR UNKNOWN INDICATION
     Dosage: 12.5 mg + 300 mg
     Route: 048
  15. RILMENIDINE [Concomitant]
     Indication: PRODUCT USED FOR UNKNOWN INDICATION
     Dosage: 1 mg/day
     Route: 048

REACTIONS (7)
  - Drug interaction [Recovered/Resolved with Sequelae]
  - Product quality issue [Recovered/Resolved with Sequelae]
  - Product substitution issue [Recovered/Resolved with Sequelae]
  - Ischaemic stroke [Recovered/Resolved with Sequelae]
  - Hemiparesis [Recovered/Resolved with Sequelae]
  - Hemianopia [Recovered/Resolved with Sequelae]
  - Hypertension [Recovered/Resolved with Sequelae]
